FAERS Safety Report 18325848 (Version 1)
Quarter: 2020Q3

REPORT INFORMATION
  Report Type: Report from Study
  Country: US (occurrence: US)
  Receive Date: 20200929
  Receipt Date: 20200929
  Transmission Date: 20201103
  Serious: Yes (Other)
  Sender: FDA-Public Use
  Company Number: US-MYLANLABS-2020M1082920

PATIENT
  Age: 30 Year
  Sex: Male

DRUGS (4)
  1. DEXAMETHASONE. [Suspect]
     Active Substance: DEXAMETHASONE
     Indication: STEROID THERAPY
     Route: 065
  2. DEXAMETHASONE. [Suspect]
     Active Substance: DEXAMETHASONE
     Indication: ACUTE LYMPHOCYTIC LEUKAEMIA
  3. PEGASPARGASE [Suspect]
     Active Substance: PEGASPARGASE
     Indication: ACUTE LYMPHOCYTIC LEUKAEMIA
     Dosage: RECEIVED 7DOSES OF PEGASPARGASE BEFORE ADR
     Route: 065
  4. THROMBATE III [Concomitant]
     Active Substance: ANTITHROMBIN III HUMAN
     Indication: SUPPLEMENTATION THERAPY
     Route: 065

REACTIONS (1)
  - Pulmonary embolism [Unknown]
